FAERS Safety Report 6772701-1 (Version None)
Quarter: 2010Q2

REPORT INFORMATION
  Report Type: 
  Country: None (occurrence: None)
  Receive Date: 20100616
  Receipt Date: 20091209
  Transmission Date: 20101027
  Serious: No
  Sender: FDA-Public Use
  Company Number: US-ASTRAZENECA-2009SE31251

PATIENT
  Age: 65 Year
  Sex: Male
  Weight: 61.2 kg

DRUGS (4)
  1. PULMICORT RESPULES [Suspect]
     Indication: CHRONIC OBSTRUCTIVE PULMONARY DISEASE
     Dosage: 0.5 MG BID
     Route: 055
     Dates: start: 20090201
  2. PERFOROMIST [Concomitant]
  3. AMLODIPINE [Concomitant]
  4. OXYGEN [Concomitant]

REACTIONS (1)
  - VISION BLURRED [None]
